FAERS Safety Report 5045038-9 (Version None)
Quarter: 2006Q3

REPORT INFORMATION
  Report Type: 
  Country: None (occurrence: None)
  Receive Date: 20060705
  Receipt Date: 20060615
  Transmission Date: 20061208
  Serious: Yes (Other)
  Sender: FDA-Public Use
  Company Number: US200603005883

PATIENT
  Age: 66 Year
  Sex: Female

DRUGS (2)
  1. HUMALOG PEN [Suspect]
     Indication: DIABETES MELLITUS INSULIN-DEPENDENT
     Dates: start: 20040101
  2. HUMALOG PEN [Concomitant]

REACTIONS (1)
  - DIFFUSE LARGE B-CELL LYMPHOMA [None]
